FAERS Safety Report 22660327 (Version 1)
Quarter: 2023Q2

REPORT INFORMATION
  Report Type: Spontaneous
  Country: GB (occurrence: GB)
  Receive Date: 20230630
  Receipt Date: 20230630
  Transmission Date: 20230721
  Serious: No
  Sender: FDA-Public Use
  Company Number: GB-JAZZ PHARMACEUTICALS-2023-GB-013808

PATIENT
  Age: 6 Year
  Sex: Female

DRUGS (1)
  1. CANNABIDIOL [Suspect]
     Active Substance: CANNABIDIOL
     Indication: Lennox-Gastaut syndrome

REACTIONS (1)
  - Drug ineffective [Unknown]
